FAERS Safety Report 15934784 (Version 1)
Quarter: 2019Q1

REPORT INFORMATION
  Report Type: Spontaneous
  Country: SE (occurrence: SE)
  Receive Date: 20190207
  Receipt Date: 20190207
  Transmission Date: 20190417
  Serious: Yes (Hospitalization)
  Sender: FDA-Public Use
  Company Number: SE-TEVA-2019-SE-1008228

PATIENT
  Sex: Male

DRUGS (2)
  1. COCILLANA-ETYFIN [Suspect]
     Active Substance: ETHYLMORPHINE HYDROCHLORIDE\HERBALS
     Indication: COUGH
     Dosage: 4 DOSES 10-15 ML PER TIME, OVERNIGHT 20 ML
     Route: 048
     Dates: start: 20181130, end: 20181201
  2. ANTABUS [Suspect]
     Active Substance: DISULFIRAM
     Route: 065
     Dates: start: 20181129

REACTIONS (7)
  - Dizziness [Unknown]
  - Headache [Unknown]
  - Nausea [Unknown]
  - Accidental overdose [Unknown]
  - Incorrect dose administered [Unknown]
  - Vomiting [Unknown]
  - Feeling abnormal [Unknown]

NARRATIVE: CASE EVENT DATE: 20181201
